FAERS Safety Report 16336855 (Version 1)
Quarter: 2019Q2

REPORT INFORMATION
  Report Type: Spontaneous
  Country: US (occurrence: US)
  Receive Date: 20190520
  Receipt Date: 20190520
  Transmission Date: 20190711
  Serious: Yes (Hospitalization)
  Sender: FDA-Public Use
  Company Number: None

PATIENT
  Sex: Female

DRUGS (8)
  1. ONDANSETRON [Concomitant]
     Active Substance: ONDANSETRON
  2. XARELTO [Concomitant]
     Active Substance: RIVAROXABAN
  3. CYCLOBENZAPR [Concomitant]
     Active Substance: CYCLOBENZAPRINE
  4. PROAIR HFA [Concomitant]
     Active Substance: ALBUTEROL SULFATE
  5. TACROLIMUS. [Suspect]
     Active Substance: TACROLIMUS
     Indication: THROMBOSIS
     Route: 048
     Dates: start: 20190425
  6. DOXYCYCL HYC [Concomitant]
  7. TRAMADOL. [Concomitant]
     Active Substance: TRAMADOL
  8. TACROLIMUS. [Suspect]
     Active Substance: TACROLIMUS
     Indication: EMBOLISM VENOUS
     Route: 048
     Dates: start: 20190425

REACTIONS (2)
  - Ill-defined disorder [None]
  - Therapy cessation [None]
